FAERS Safety Report 24910447 (Version 1)
Quarter: 2025Q1

REPORT INFORMATION
  Report Type: Report from Study
  Country: CA (occurrence: CA)
  Receive Date: 20250131
  Receipt Date: 20250131
  Transmission Date: 20250409
  Serious: Yes (Other)
  Sender: VERITY PHARMACEUTICALS INC.
  Company Number: CA-VER-202500008

PATIENT
  Age: 68 Year
  Sex: Male

DRUGS (3)
  1. TRELSTAR [Suspect]
     Active Substance: TRIPTORELIN PAMOATE
     Indication: Prostate cancer
     Dosage: POWDER FOR PROLONGED-RELEASE SUSPENSION FOR INJECT.
     Route: 030
     Dates: start: 20240104, end: 20240104
  2. TRELSTAR [Suspect]
     Active Substance: TRIPTORELIN PAMOATE
     Indication: Prostate cancer
     Dosage: POWDER FOR PROLONGED-RELEASE SUSPENSION FOR INJECT. THE BATCH NUMBER WAS 16815, EXPIRY DATE WAS 31-O
     Route: 030
     Dates: start: 20240710, end: 20240710
  3. TRELSTAR [Suspect]
     Active Substance: TRIPTORELIN PAMOATE
     Indication: Prostate cancer
     Dosage: POWDER FOR PROLONGED-RELEASE SUSPENSION FOR INJECT. THE START DATE OF THE THERAPY WAS ON 03-JAN-2025
     Route: 030
     Dates: end: 20250103

REACTIONS (3)
  - Hot flush [Unknown]
  - Cardiac fibrillation [Recovered/Resolved with Sequelae]
  - Inappropriate schedule of product administration [Recovered/Resolved]

NARRATIVE: CASE EVENT DATE: 20240710
